FAERS Safety Report 5143449-4 (Version None)
Quarter: 2006Q4

REPORT INFORMATION
  Report Type: 
  Country: None (occurrence: None)
  Receive Date: 20061101
  Receipt Date: 20061101
  Transmission Date: 20070319
  Serious: Yes (Death)
  Sender: FDA-Public Use
  Company Number: None

PATIENT
  Age: 56 Year
  Sex: Female
  Weight: 70 kg

DRUGS (10)
  1. HEPARIN [Suspect]
     Indication: THROMBOSIS
     Dosage: 1000 UNITS PER HOUR IV
     Route: 042
     Dates: start: 20061025, end: 20061026
  2. LEVOPHED [Concomitant]
  3. PHENYTOIN SODIUM [Concomitant]
  4. PANTOPRAZOLE SODIUM [Concomitant]
  5. NADANSETRON [Concomitant]
  6. MORPHINE [Concomitant]
  7. METOPROLOL TARTRATE [Concomitant]
  8. LORAZEPAM [Concomitant]
  9. CEFAZOLIN [Concomitant]
  10. ASPIRIN [Concomitant]

REACTIONS (1)
  - CEREBRAL HAEMORRHAGE [None]
